FAERS Safety Report 8314976-3 (Version None)
Quarter: 2012Q2

REPORT INFORMATION
  Report Type: 
  Country: None (occurrence: None)
  Receive Date: 20120426
  Receipt Date: 20120104
  Transmission Date: 20120825
  Serious: No
  Sender: FDA-Public Use
  Company Number: US-MUTUAL PHARMACEUTICAL COMPANY, INC.-CLCY20120005

PATIENT
  Sex: Female
  Weight: 63.56 kg

DRUGS (3)
  1. UNSPECIFIED MEDICATION [Concomitant]
     Indication: GLAUCOMA
     Route: 047
  2. COLCRYS [Suspect]
     Indication: GOUTY ARTHRITIS
     Route: 048
     Dates: start: 20111101, end: 20111201
  3. IBUPROFEN (ADVIL) [Concomitant]
     Indication: ARTHRALGIA
     Route: 048

REACTIONS (4)
  - BALANCE DISORDER [None]
  - ARTHRITIS [None]
  - ARTHRALGIA [None]
  - URINE OUTPUT DECREASED [None]
